APPROVED DRUG PRODUCT: CANASA
Active Ingredient: MESALAMINE
Strength: 1GM
Dosage Form/Route: SUPPOSITORY;RECTAL
Application: N021252 | Product #002 | TE Code: AB
Applicant: ABBVIE INC
Approved: Nov 5, 2004 | RLD: Yes | RS: Yes | Type: RX

PATENTS:
Patent 8217083 | Expires: Jun 6, 2028
Patent 8436051 | Expires: Jun 6, 2028